FAERS Safety Report 19621523 (Version 1)
Quarter: 2021Q3

REPORT INFORMATION
  Report Type: Report from Study
  Country: CO (occurrence: CO)
  Receive Date: 20210728
  Receipt Date: 20210728
  Transmission Date: 20211014
  Serious: Yes (Hospitalization)
  Sender: FDA-Public Use
  Company Number: NVSC2021CO163885

PATIENT
  Age: 48 Year
  Sex: Female
  Weight: 78 kg

DRUGS (3)
  1. REVOLADE [Suspect]
     Active Substance: ELTROMBOPAG OLAMINE
     Indication: THROMBOCYTOPENIA
     Dosage: 50 MG, QD (2 TAB OF 25 MG)
     Route: 048
     Dates: start: 2017
  2. REVOLADE [Suspect]
     Active Substance: ELTROMBOPAG OLAMINE
     Dosage: 25 MG, QD (AFTER 5 MONTHS APPROXIMATELY)
     Route: 048
  3. LEVOTHYROXINE. [Concomitant]
     Active Substance: LEVOTHYROXINE
     Indication: HYPOTHYROIDISM
     Dosage: 75 MG, QD
     Route: 048

REACTIONS (10)
  - Feeling of despair [Unknown]
  - Oxygen saturation decreased [Recovering/Resolving]
  - Asthenia [Recovered/Resolved with Sequelae]
  - Pyrexia [Unknown]
  - Fatigue [Recovering/Resolving]
  - Headache [Unknown]
  - COVID-19 pneumonia [Unknown]
  - Cough [Unknown]
  - SARS-CoV-2 test positive [Unknown]
  - Dyspnoea [Recovering/Resolving]

NARRATIVE: CASE EVENT DATE: 20210610
